FAERS Safety Report 6703298-X (Version None)
Quarter: 2010Q2

REPORT INFORMATION
  Report Type: 
  Country: None (occurrence: None)
  Receive Date: 20100430
  Receipt Date: 20100428
  Transmission Date: 20101027
  Serious: Yes (Life-Threatening, Hospitalization)
  Sender: FDA-Public Use
  Company Number: AU-SANOFI-AVENTIS-2010SA022870

PATIENT
  Age: 69 Year
  Sex: Male

DRUGS (25)
  1. LANTUS [Suspect]
     Route: 058
     Dates: start: 20091101
  2. PLAVIX [Concomitant]
  3. ATACAND [Concomitant]
  4. ATORVASTATIN [Concomitant]
  5. MIRTAZAPINE [Concomitant]
  6. ALPHAGAN [Concomitant]
     Route: 031
  7. LUMIGAN [Concomitant]
     Route: 031
  8. MAXIDEX [Concomitant]
  9. METFORMIN [Concomitant]
  10. NEXIUM /UNK/ [Concomitant]
  11. DIGOXIN [Concomitant]
  12. AZITHROMYCIN [Concomitant]
  13. MOXIFLOXACIN HCL [Concomitant]
  14. NOVORAPID [Concomitant]
  15. LASIX [Concomitant]
  16. OXYCODONE [Concomitant]
  17. OXYCODONE HCL [Concomitant]
  18. PANAMAX [Concomitant]
  19. PREDNISOLONE [Concomitant]
  20. REFRESH [Concomitant]
  21. FLUTICASONE PROPIONATE/SALMETEROL [Concomitant]
  22. ALDACTONE [Concomitant]
  23. TIOTROPIUM BROMIDE [Concomitant]
  24. VENTOLIN [Concomitant]
  25. VALIUM [Concomitant]

REACTIONS (1)
  - LOWER RESPIRATORY TRACT INFECTION [None]
